FAERS Safety Report 17094261 (Version 4)
Quarter: 2022Q2

REPORT INFORMATION
  Report Type: Spontaneous
  Country: JP (occurrence: JP)
  Receive Date: 20191129
  Receipt Date: 20220505
  Transmission Date: 20220721
  Serious: Yes (Hospitalization, Other)
  Sender: FDA-Public Use
  Company Number: JP-BRISTOL-MYERS SQUIBB COMPANY-BMS-2019-114511

PATIENT
  Age: 63 Year
  Sex: Male
  Weight: 58 kg

DRUGS (12)
  1. DOCETAXEL [Suspect]
     Active Substance: DOCETAXEL
     Indication: Non-small cell lung cancer recurrent
     Dosage: 60 MG/M2
     Route: 041
     Dates: start: 20190703
  2. DOCETAXEL [Suspect]
     Active Substance: DOCETAXEL
     Dosage: 50 MG/M2
     Route: 041
     Dates: start: 20190731
  3. DOCETAXEL [Suspect]
     Active Substance: DOCETAXEL
     Indication: Non-small cell lung cancer recurrent
     Dosage: 60 MILLIGRAM/SQ. METER
     Route: 041
     Dates: start: 20190703, end: 20190731
  4. DOCETAXEL [Suspect]
     Active Substance: DOCETAXEL
     Dosage: 50 MILLIGRAM/SQ. METER
     Route: 041
  5. SPIRIVA [Concomitant]
     Active Substance: TIOTROPIUM BROMIDE MONOHYDRATE
     Indication: Chronic obstructive pulmonary disease
     Dosage: 5 G
     Route: 055
     Dates: start: 20190201
  6. ALLOPURINOL [Concomitant]
     Active Substance: ALLOPURINOL
     Indication: Hyperuricaemia
     Dosage: 100 MG
     Route: 048
     Dates: start: 20190205
  7. MOSAPRIDE CITRATE [Concomitant]
     Active Substance: MOSAPRIDE CITRATE
     Indication: Gastric ulcer
     Dosage: 15 MG
     Route: 048
     Dates: start: 20190314
  8. CALONAL [Concomitant]
     Active Substance: ACETAMINOPHEN
     Indication: Cancer pain
     Dosage: 2000 MG
     Route: 048
     Dates: start: 20191001
  9. FELBINAC [Concomitant]
     Active Substance: FELBINAC
     Indication: Cancer pain
     Dosage: 70 MG
     Route: 062
     Dates: start: 20191011
  10. DICLOFENAC SODIUM [Concomitant]
     Active Substance: DICLOFENAC SODIUM
     Indication: Cancer pain
     Dosage: 75 MG
     Route: 048
     Dates: start: 20191016
  11. OXYCODONE [Concomitant]
     Active Substance: OXYCODONE
     Indication: Cancer pain
     Dosage: 20 MG
     Route: 048
     Dates: start: 20191016
  12. NEXIUM [Concomitant]
     Active Substance: ESOMEPRAZOLE MAGNESIUM
     Indication: Gastric ulcer
     Dosage: 20 MILLIGRAM
     Route: 048
     Dates: start: 20190205

REACTIONS (11)
  - Enterocolitis [Recovering/Resolving]
  - Interstitial lung disease [Not Recovered/Not Resolved]
  - Febrile neutropenia [Recovered/Resolved]
  - Erythema multiforme [Unknown]
  - Eczema [Unknown]
  - Pancreatic atrophy [Unknown]
  - Cervical spinal stenosis [Unknown]
  - Hepatic steatosis [Unknown]
  - Renal cyst [Unknown]
  - Osteosclerosis [Unknown]
  - Arteriosclerosis [Unknown]

NARRATIVE: CASE EVENT DATE: 20190101
